FAERS Safety Report 8525925-7 (Version None)
Quarter: 2012Q3

REPORT INFORMATION
  Report Type: 
  Country: None (occurrence: None)
  Receive Date: 20120720
  Receipt Date: 20120716
  Transmission Date: 20120928
  Serious: No
  Sender: FDA-Public Use
  Company Number: US-PFIZER INC-2012171165

PATIENT
  Sex: Female
  Weight: 83.9 kg

DRUGS (6)
  1. DOXAZOSIN [Concomitant]
     Indication: HYPERTENSION
     Dosage: 2 MG, 1X/DAY
     Route: 048
  2. REVATIO [Suspect]
     Indication: PULMONARY HYPERTENSION
     Dosage: 20 MG, 3X/DAY
     Route: 048
     Dates: start: 20120101, end: 20120601
  3. COUMADIN [Concomitant]
     Dosage: UNK
  4. TAZTIA XT [Concomitant]
     Indication: HYPERTENSION
     Dosage: 360 MG, 1X/DAY
     Route: 048
  5. LEVOTHYROXINE [Concomitant]
     Indication: AUTOIMMUNE THYROIDITIS
     Dosage: UNK
  6. LASIX [Concomitant]
     Dosage: 80 MG, 2X/DAY

REACTIONS (2)
  - HEADACHE [None]
  - MALAISE [None]
